FAERS Safety Report 13303741 (Version 2)
Quarter: 2017Q2

REPORT INFORMATION
  Report Type: Spontaneous
  Country: US (occurrence: US)
  Receive Date: 20170307
  Receipt Date: 20170508
  Transmission Date: 20170830
  Serious: Yes (Death)
  Sender: FDA-Public Use
  Company Number: US-TAIHO ONCOLOGY INC-EU-2017-00409

PATIENT
  Sex: Female
  Weight: 59.02 kg

DRUGS (1)
  1. LONSURF [Suspect]
     Active Substance: TIPIRACIL HYDROCHLORIDE\TRIFLURIDINE
     Indication: COLON CANCER
     Dosage: CYCLE 3 STARTED ON 05APR2017
     Route: 048
     Dates: start: 20170208

REACTIONS (4)
  - Rotator cuff syndrome [Unknown]
  - Fatigue [Unknown]
  - Death [Fatal]
  - Musculoskeletal pain [Unknown]

NARRATIVE: CASE EVENT DATE: 2017
